FAERS Safety Report 18190151 (Version 1)
Quarter: 2020Q3

REPORT INFORMATION
  Report Type: Spontaneous
  Country: FR (occurrence: FR)
  Receive Date: 20200825
  Receipt Date: 20200825
  Transmission Date: 20201103
  Serious: Yes (Death, Other)
  Sender: FDA-Public Use
  Company Number: FR-SA-2020SA221048

PATIENT

DRUGS (2)
  1. RIFADINE [Suspect]
     Active Substance: RIFAMPIN
     Indication: ENDOCARDITIS
     Dosage: 1.5 DF, QD
     Route: 042
     Dates: start: 20200512, end: 20200526
  2. ORBENINE [Concomitant]
     Active Substance: CLOXACILLIN SODIUM
     Indication: ENDOCARDITIS
     Route: 042
     Dates: start: 20200428, end: 20200527

REACTIONS (5)
  - Hepatic encephalopathy [Fatal]
  - Hepatitis [Fatal]
  - Multiple organ dysfunction syndrome [Fatal]
  - Confusional state [Fatal]
  - Jaundice [Fatal]

NARRATIVE: CASE EVENT DATE: 20200527
